FAERS Safety Report 10137577 (Version 1)
Quarter: 2014Q2

REPORT INFORMATION
  Report Type: Spontaneous
  Country: US (occurrence: None)
  Receive Date: 20140428
  Receipt Date: 20140428
  Transmission Date: 20141212
  Serious: No
  Sender: FDA-Public Use
  Company Number: None

PATIENT
  Age: 55 Year
  Sex: Male
  Weight: 95.4 kg

DRUGS (2)
  1. GEMCITABINE HYDROCHLORIDE [Suspect]
  2. SUNITINIB MALATE [Suspect]

REACTIONS (5)
  - Urinary retention [None]
  - Abdominal pain lower [None]
  - Haematuria [None]
  - Renal mass [None]
  - Thrombosis [None]
